FAERS Safety Report 6483615-9 (Version None)
Quarter: 2009Q4

REPORT INFORMATION
  Report Type: 
  Country: None (occurrence: None)
  Receive Date: 20091209
  Receipt Date: 20091201
  Transmission Date: 20100525
  Serious: Yes (Life-Threatening)
  Sender: FDA-Public Use
  Company Number: GXKR2009PL13026

PATIENT
  Sex: Female
  Weight: 85 kg

DRUGS (5)
  1. KETONAL (NGX) [Suspect]
     Indication: RENAL COLIC
     Dosage: 100 MG DAILY
     Route: 042
     Dates: start: 20091026, end: 20091026
  2. NOLICIN [Concomitant]
  3. UROSEPT [Concomitant]
     Indication: URINARY TRACT INFLAMMATION
  4. HERBAL PREPARATION [Concomitant]
  5. NO-SPA [Concomitant]

REACTIONS (3)
  - HYPOTENSION [None]
  - LOSS OF CONSCIOUSNESS [None]
  - RASH MACULAR [None]
